FAERS Safety Report 9349695 (Version 1)
Quarter: 2013Q2

REPORT INFORMATION
  Report Type: Report from Study
  Country: JP (occurrence: JP)
  Receive Date: 20130614
  Receipt Date: 20130614
  Transmission Date: 20140414
  Serious: Yes (Other)
  Sender: FDA-Public Use
  Company Number: JP-009507513-1304JPN011595

PATIENT
  Age: 74 Year
  Sex: Female

DRUGS (1)
  1. ZETIA TABLETS 10MG [Suspect]
     Dosage: 10 MG, QD
     Route: 048
     Dates: start: 20070904

REACTIONS (4)
  - Loss of consciousness [Recovered/Resolved]
  - Cyanosis [Recovered/Resolved]
  - Blood pressure decreased [Recovered/Resolved]
  - Bronchitis [Recovered/Resolved]
